FAERS Safety Report 21039720 (Version 2)
Quarter: 2022Q3

REPORT INFORMATION
  Report Type: Report from Study
  Country: US (occurrence: US)
  Receive Date: 20220704
  Receipt Date: 20220823
  Transmission Date: 20221027
  Serious: Yes (Hospitalization)
  Sender: FDA-Public Use
  Company Number: US-HORIZON THERAPEUTICS-HZN-2022-004372

PATIENT

DRUGS (1)
  1. KRYSTEXXA [Suspect]
     Active Substance: PEGLOTICASE
     Indication: Product used for unknown indication
     Dosage: FIRST INFUSION, EVERY 2 WEEKS FOR 6 MONTHS
     Route: 042
     Dates: start: 20220524

REACTIONS (10)
  - Dizziness [Recovering/Resolving]
  - Tremor [Recovering/Resolving]
  - Headache [Recovering/Resolving]
  - Blood pressure decreased [Recovering/Resolving]
  - Dyspnoea [Recovering/Resolving]
  - Nausea [Recovering/Resolving]
  - Chest pain [Recovering/Resolving]
  - Vomiting [Recovering/Resolving]
  - Pruritus [Not Recovered/Not Resolved]
  - Gout [Unknown]

NARRATIVE: CASE EVENT DATE: 20220501
